FAERS Safety Report 9721681 (Version 2)
Quarter: 2014Q1

REPORT INFORMATION
  Report Type: Spontaneous
  Country: US (occurrence: US)
  Receive Date: 20131201
  Receipt Date: 20140228
  Transmission Date: 20141002
  Serious: No
  Sender: FDA-Public Use
  Company Number: US-ABBVIE-13P-163-1170688-00

PATIENT
  Age: 65 Year
  Sex: Male

DRUGS (1)
  1. ANDROGEL [Suspect]
     Indication: HYPOGONADISM

REACTIONS (1)
  - Hepatic enzyme abnormal [Not Recovered/Not Resolved]
